FAERS Safety Report 4920284-0 (Version None)
Quarter: 2006Q1

REPORT INFORMATION
  Report Type: 
  Country: None (occurrence: None)
  Receive Date: 20060223
  Receipt Date: 20060211
  Transmission Date: 20060701
  Serious: Yes (Disabling, Other)
  Sender: FDA-Public Use
  Company Number: GB-GLAXOSMITHKLINE-B0410965A

PATIENT
  Age: 60 Year

DRUGS (5)
  1. LITHIUM CARBONATE [Suspect]
     Indication: BIPOLAR DISORDER
     Dosage: 1600MG PER DAY
     Route: 065
     Dates: end: 20030101
  2. TACROLIMUS [Concomitant]
     Route: 065
  3. PREDNISOLONE [Concomitant]
     Route: 065
  4. MYCOPHENOLATE MOFETIL [Concomitant]
     Route: 065
  5. ATORVASTATIN CALCIUM [Concomitant]
     Route: 065

REACTIONS (2)
  - MACULOPATHY [None]
  - VISUAL ACUITY REDUCED [None]
